FAERS Safety Report 8524931-6 (Version None)
Quarter: 2012Q3

REPORT INFORMATION
  Report Type: 
  Country: None (occurrence: None)
  Receive Date: 20120720
  Receipt Date: 20120717
  Transmission Date: 20120928
  Serious: Yes (Death)
  Sender: FDA-Public Use
  Company Number: RO-009507513-1207GBR006116

PATIENT

DRUGS (3)
  1. VICTRELIS [Suspect]
     Indication: HEPATITIS C
     Dosage: 2400 MG, QD
     Dates: start: 20120601, end: 20120714
  2. PEG-INTRON [Concomitant]
     Indication: HEPATITIS C
     Dosage: 120 MICROGRAM, UNK
     Dates: start: 20120503, end: 20120713
  3. REBETOL [Concomitant]
     Indication: HEPATITIS C
     Dosage: 1000 MG, QD
     Dates: start: 20120503, end: 20120714

REACTIONS (1)
  - DEATH [None]
